FAERS Safety Report 9727075 (Version 2)
Quarter: 2014Q1

REPORT INFORMATION
  Report Type: Report from Study
  Country: JP (occurrence: JP)
  Receive Date: 20131203
  Receipt Date: 20140221
  Transmission Date: 20141002
  Serious: Yes (Life-Threatening)
  Sender: FDA-Public Use
  Company Number: JP-OTSUKA-JP-2013-15659

PATIENT
  Age: 92 Year
  Sex: Male
  Weight: 85.4 kg

DRUGS (19)
  1. SAMSCA [Suspect]
     Indication: FLUID RETENTION
     Dosage: 7.5 MG MILLIGRAM(S), QAM
     Route: 048
     Dates: start: 20131009, end: 20131012
  2. SAMSCA [Suspect]
     Dosage: 15 MG MILLIGRAM(S), QAM
     Route: 048
     Dates: start: 20131013, end: 20131014
  3. SAMSCA [Suspect]
     Dosage: 15 MG MILLIGRAM(S), QAM
     Route: 048
     Dates: start: 20131016, end: 20131024
  4. TANADOPA [Concomitant]
     Indication: CARDIAC FAILURE
     Dosage: 1 G GRAM(S), DAILY DOSE
     Route: 048
     Dates: end: 20131014
  5. MEVALOTIN [Concomitant]
     Dosage: 5 MG MILLIGRAM(S), DAILY DOSE
     Route: 048
     Dates: end: 20131014
  6. EQUA [Concomitant]
     Dosage: 100 MG MILLIGRAM(S), DAILY DOSE
     Route: 048
     Dates: end: 20131014
  7. AMARYL [Concomitant]
     Dosage: 3 MG MILLIGRAM(S), DAILY DOSE
     Route: 048
     Dates: end: 20131014
  8. METGLUCO [Concomitant]
     Dosage: 750 MG MILLIGRAM(S), DAILY DOSE
     Route: 048
     Dates: end: 20131014
  9. SEIBULE [Concomitant]
     Dosage: 150 MG MILLIGRAM(S), DAILY DOSE
     Route: 048
     Dates: end: 20131014
  10. BAYASPIRIN [Concomitant]
     Indication: CARDIAC FAILURE
     Dosage: 100 MG MILLIGRAM(S), DAILY DOSE
     Route: 048
  11. MAINTATE [Concomitant]
     Indication: CARDIAC FAILURE
     Dosage: 2.5 MG MILLIGRAM(S), DAILY DOSE
     Route: 048
  12. LASIX [Concomitant]
     Indication: CARDIAC FAILURE
     Dosage: 100 MG MILLIGRAM(S), DAILY DOSE
     Route: 048
  13. VASOLAN [Concomitant]
     Indication: CARDIAC FAILURE
     Dosage: 160 MG MILLIGRAM(S), DAILY DOSE
     Route: 048
  14. ALOSENN [Concomitant]
     Dosage: 1 G GRAM(S), DAILY DOSE
     Route: 048
  15. ALESION [Concomitant]
     Dosage: 20 MG MILLIGRAM(S), DAILY DOSE
     Route: 048
  16. HARNAL [Concomitant]
     Dosage: 0.2 MG MILLIGRAM(S), DAILY DOSE
     Route: 048
  17. PROSTAL [Concomitant]
     Dosage: 50 MG MILLIGRAM(S), DAILY DOSE
     Route: 048
  18. DIART [Concomitant]
     Indication: CARDIAC FAILURE
     Dosage: 60 MG MILLIGRAM(S), DAILY DOSE
     Route: 048
     Dates: start: 20131008
  19. LASIX [Concomitant]
     Indication: CARDIAC FAILURE
     Dosage: 240 MG MILLIGRAM(S), DAILY DOSE
     Route: 042
     Dates: start: 20131014, end: 20131016

REACTIONS (2)
  - Thirst [Recovered/Resolved]
  - Hypercapnia [Recovered/Resolved]
